FAERS Safety Report 9805542 (Version 1)
Quarter: 2014Q1

REPORT INFORMATION
  Report Type: Spontaneous
  Country: US (occurrence: None)
  Receive Date: 20140107
  Receipt Date: 20140107
  Transmission Date: 20141002
  Serious: Yes (Other)
  Sender: FDA-Public Use
  Company Number: 1303847

PATIENT
  Age: 53 Year
  Sex: Female
  Weight: 64.41 kg

DRUGS (2)
  1. NOSTRILLA [Suspect]
     Dosage: SPRAYED NASALLY 3-4 TIMES
     Dates: start: 20131120, end: 20131213
  2. NOSTRILLA [Suspect]
     Dosage: SPRAYED NASALLY 3-4 TIMES
     Dates: start: 20131120, end: 20131213

REACTIONS (2)
  - Drug abuser [None]
  - Nasal discomfort [None]
